FAERS Safety Report 4973249-7 (Version None)
Quarter: 2006Q2

REPORT INFORMATION
  Report Type: 
  Country: None (occurrence: None)
  Receive Date: 20060407
  Receipt Date: 20060322
  Transmission Date: 20061013
  Serious: Yes (Other)
  Sender: FDA-Public Use
  Company Number: 2006EU000982

PATIENT
  Age: 80 Year
  Sex: Female

DRUGS (1)
  1. PROTOPIC [Suspect]
     Indication: PEMPHIGUS
     Dosage: 0.1 %, TOPICAL
     Route: 061

REACTIONS (1)
  - SQUAMOUS CELL CARCINOMA [None]
